FAERS Safety Report 8578789-X (Version None)
Quarter: 2012Q3

REPORT INFORMATION
  Report Type: 
  Country: None (occurrence: None)
  Receive Date: 20120808
  Receipt Date: 20120731
  Transmission Date: 20120928
  Serious: Yes (Other)
  Sender: FDA-Public Use
  Company Number: US-ASTRAZENECA-2011SE41513

PATIENT
  Age: 21228 Day
  Sex: Female

DRUGS (48)
  1. NEXIUM [Suspect]
     Route: 048
     Dates: start: 20060207
  2. NEXIUM [Suspect]
     Route: 048
     Dates: start: 20070526
  3. PREDNISONE [Concomitant]
     Dates: start: 20060313
  4. OMACOR [Concomitant]
     Dates: start: 20060223
  5. ROBAXIN [Concomitant]
     Dosage: 750 MG EVERY 4-6 HOURS PRN
     Route: 048
     Dates: start: 20070905
  6. ARMODAFINIL [Concomitant]
     Dates: start: 20060208
  7. CORGARD [Concomitant]
     Dates: start: 20021107
  8. CORGARD [Concomitant]
     Dates: start: 20060223
  9. CORGARD [Concomitant]
     Dates: start: 20060920
  10. ZYRTEC [Concomitant]
     Dates: start: 20060220
  11. ROBAXIN [Concomitant]
     Dates: start: 20060216
  12. CLONAZEPAM [Concomitant]
     Dates: start: 20060208
  13. CELEXA [Concomitant]
     Dates: start: 20041009
  14. PRILOSEC [Suspect]
     Indication: GASTROOESOPHAGEAL REFLUX DISEASE
     Route: 065
     Dates: start: 19950101, end: 20100101
  15. VICODIN [Concomitant]
     Dosage: 10 MG-650 MG
     Dates: start: 20060203
  16. AMITRIPTYLINE HCL [Concomitant]
     Dates: start: 20040909
  17. CLONAZEPAM [Concomitant]
     Dates: start: 20070613
  18. CEPHALEXIN [Concomitant]
     Dates: start: 20060315
  19. PREDNISONE [Concomitant]
     Dosage: WITH FOOD OR MILK
     Dates: start: 20061002
  20. RISPERDAL [Concomitant]
     Dates: start: 20040909
  21. RISPERDAL [Concomitant]
     Dates: start: 20060308
  22. FIORICET [Concomitant]
     Dosage: TAKE ONE TABLET 4 TIMES DAILY AS NEEDED
     Dates: start: 20060911
  23. METHYLPREDNISOLONE [Concomitant]
     Dates: start: 20060216
  24. LOMOTIL [Concomitant]
     Dosage: 2.5-0.25 MG
     Dates: start: 20060210
  25. CELEBREX [Concomitant]
     Dosage: WITH FOOD OR MILK
     Dates: start: 20060920
  26. BUT/ASA/CAFF [Concomitant]
     Dosage: TAKE ONE CAPSULE EVERY SIX HOURS AS NEEDED
     Dates: start: 20070521
  27. NEXIUM [Suspect]
     Indication: GASTROOESOPHAGEAL REFLUX DISEASE
     Route: 048
     Dates: start: 19950101, end: 20100101
  28. VICODIN [Concomitant]
     Dates: start: 20021107
  29. VICODIN [Concomitant]
     Dosage: 5MG-500MG
     Dates: start: 20060220
  30. NEXIUM [Suspect]
     Route: 048
     Dates: start: 20021107
  31. CEPHALEXIN [Concomitant]
     Dates: start: 20070529
  32. AMITRIPTYLINE HCL [Concomitant]
     Dates: start: 20060308
  33. FIORICET [Concomitant]
     Dates: start: 20021107
  34. BIAXIN XL [Concomitant]
     Dates: start: 20060220
  35. IMITREX [Concomitant]
     Indication: HEADACHE
     Dosage: 50 MG TABLET TAKE ONE TABLET AT ONSET OF HEADACHE AND REPEAT IN TWO HOURS IF NEEDED
     Dates: start: 20070526
  36. STELAZINE [Concomitant]
     Dates: start: 20021107
  37. CLARITIN-D [Concomitant]
     Dosage: ONE TABLET PER DAY PRN
     Route: 048
     Dates: start: 20070905
  38. BENADRYL [Concomitant]
     Dosage: 25 MG TWO TABLET PER DAY PRN
     Route: 048
     Dates: start: 20070905
  39. FIORICET [Concomitant]
     Dosage: 325-40-50
     Dates: start: 20060220
  40. CELEBREX [Concomitant]
     Dates: start: 20021107
  41. NEXIUM [Suspect]
     Route: 048
     Dates: start: 20061106
  42. VICODIN [Concomitant]
     Dosage: 7.5-325 MG TAKE ONE TABLET EVERY SIX HOURS
     Dates: start: 20070531
  43. TEQUIN [Concomitant]
     Dates: start: 20060227
  44. ROBAXIN [Concomitant]
     Dates: start: 20070531
  45. CELEBREX [Concomitant]
     Dates: start: 20060201
  46. LYRICA [Concomitant]
     Dates: start: 20070618
  47. CELEXA [Concomitant]
     Dates: start: 20021107
  48. ELAVIL [Concomitant]
     Dates: start: 20021107

REACTIONS (6)
  - OSTEOPENIA [None]
  - MENTAL DISORDER [None]
  - FOOT FRACTURE [None]
  - PAIN [None]
  - OSTEOPOROSIS [None]
  - PAIN IN EXTREMITY [None]
